FAERS Safety Report 7002484-1 (Version None)
Quarter: 2010Q3

REPORT INFORMATION
  Report Type: 
  Country: None (occurrence: None)
  Receive Date: 20100920
  Receipt Date: 20100113
  Transmission Date: 20110219
  Serious: Yes (Other)
  Sender: FDA-Public Use
  Company Number: US-ASTRAZENECA-2007UW11856

PATIENT
  Age: 47 Year
  Sex: Female
  Weight: 102.1 kg

DRUGS (9)
  1. SEROQUEL [Suspect]
     Indication: DEPRESSION
     Route: 048
     Dates: start: 19950101
  2. SEROQUEL [Suspect]
     Route: 048
     Dates: start: 20000331
  3. GEODON [Concomitant]
  4. ZYPREXA [Concomitant]
  5. WELLBUTRIN [Concomitant]
  6. TRAZODONE HCL [Concomitant]
  7. REMERON [Concomitant]
  8. DEPAKOTE [Concomitant]
     Dosage: 500 MG AT MORNING AT 750 MG AT NIGHT
     Dates: start: 20000331
  9. EFFEXOR XR [Concomitant]
     Dosage: 75 MG IN THE MORNING AT 150 MG AT NIGHT
     Dates: start: 20000331

REACTIONS (3)
  - DIABETES MELLITUS [None]
  - KETOACIDOSIS [None]
  - PANCREATITIS [None]
